FAERS Safety Report 20674270 (Version 6)
Quarter: 2022Q3

REPORT INFORMATION
  Report Type: Report from Study
  Country: US (occurrence: US)
  Receive Date: 20220405
  Receipt Date: 20220902
  Transmission Date: 20221027
  Serious: No
  Sender: FDA-Public Use
  Company Number: US-NOVARTISTESTPH-NVSC2022US075932

PATIENT
  Age: 75 Year
  Sex: Male

DRUGS (2)
  1. GLATOPA [Suspect]
     Active Substance: GLATIRAMER ACETATE
     Indication: Multiple sclerosis
     Dosage: 20 MG, QD
     Route: 058
     Dates: start: 20190502
  2. GLATOPA [Suspect]
     Active Substance: GLATIRAMER ACETATE
     Dosage: 20 MG/KG, QD
     Route: 058
     Dates: start: 20190519

REACTIONS (5)
  - Nodule [Unknown]
  - Injection site reaction [Unknown]
  - Pain [Unknown]
  - Injection site mass [Unknown]
  - Product complaint [Unknown]

NARRATIVE: CASE EVENT DATE: 20220310
